FAERS Safety Report 21887936 (Version 4)
Quarter: 2023Q1

REPORT INFORMATION
  Report Type: Other
  Country: US (occurrence: None)
  Receive Date: 20230120
  Receipt Date: 20230215
  Transmission Date: 20230418
  Serious: Yes (Other)
  Sender: FDA-Public Use
  Company Number: US-ROCHE-2927171

PATIENT
  Age: 85 Year
  Sex: Male

DRUGS (1)
  1. ESBRIET [Suspect]
     Active Substance: PIRFENIDONE
     Indication: Benign neoplasm of prostate
     Dosage: 3 TIMES A DAY WITH FOOD
     Route: 048

REACTIONS (9)
  - Glaucoma [Unknown]
  - Cataract [Unknown]
  - Tendon rupture [Unknown]
  - Prostate cancer [Unknown]
  - Hypoacusis [Unknown]
  - Off label use [Unknown]
  - Pneumonia [Unknown]
  - Palpitations [Unknown]
  - Choking [Unknown]
